FAERS Safety Report 10896493 (Version 1)
Quarter: 2015Q1

REPORT INFORMATION
  Report Type: Spontaneous
  Country: US (occurrence: None)
  Receive Date: 20150302
  Receipt Date: 20150302
  Transmission Date: 20150721
  Serious: No
  Sender: FDA-Public Use
  Company Number: None

PATIENT
  Sex: Female

DRUGS (14)
  1. LASIX [Concomitant]
     Active Substance: FUROSEMIDE
  2. NORCE [Concomitant]
  3. FLICIOFENAC [Concomitant]
  4. FLEXARIL [Concomitant]
  5. AMPYRA [Suspect]
     Active Substance: DALFAMPRIDINE
     Indication: MULTIPLE SCLEROSIS
     Route: 048
     Dates: start: 201304
  6. VITAMIN D [Concomitant]
     Active Substance: CHOLECALCIFEROL
  7. CPIRO [Concomitant]
  8. MACROBID [Concomitant]
     Active Substance: NITROFURANTOIN\NITROFURANTOIN MONOHYDRATE
  9. CITALOPRAM [Concomitant]
     Active Substance: CITALOPRAM HYDROBROMIDE
  10. PREONISONE [Concomitant]
  11. AVONEX [Concomitant]
     Active Substance: INTERFERON BETA-1A
  12. LEVOTHROID [Concomitant]
     Active Substance: LEVOTHYROXINE SODIUM
  13. LIZENIDINE [Concomitant]
  14. MELOXICAM. [Concomitant]
     Active Substance: MELOXICAM

REACTIONS (1)
  - Urinary tract infection [None]

NARRATIVE: CASE EVENT DATE: 20130716
